FAERS Safety Report 6396599-9 (Version None)
Quarter: 2009Q4

REPORT INFORMATION
  Report Type: 
  Country: None (occurrence: None)
  Receive Date: 20091012
  Receipt Date: 20091001
  Transmission Date: 20100525
  Serious: Yes (Hospitalization)
  Sender: FDA-Public Use
  Company Number: CH-ASTRAZENECA-2009SE17691

PATIENT
  Age: 84 Year
  Sex: Female

DRUGS (6)
  1. NEXIUM [Suspect]
     Route: 048
     Dates: end: 20090612
  2. APROVEL [Suspect]
     Route: 048
     Dates: start: 20080101, end: 20090810
  3. GABAPENTIN [Suspect]
     Indication: ANXIETY DISORDER
     Route: 048
     Dates: start: 20090612
  4. TENORMIN [Concomitant]
  5. FRANGULAE [Concomitant]
     Route: 048
     Dates: end: 20090810
  6. ASPIRIN [Concomitant]
     Route: 048

REACTIONS (3)
  - HYPONATRAEMIA [None]
  - INAPPROPRIATE ANTIDIURETIC HORMONE SECRETION [None]
  - OFF LABEL USE [None]
